FAERS Safety Report 4377217-8 (Version None)
Quarter: 2004Q2

REPORT INFORMATION
  Report Type: 
  Country: None (occurrence: None)
  Receive Date: 20040614
  Receipt Date: 20040614
  Transmission Date: 20050107
  Serious: Yes (Other)
  Sender: FDA-Public Use
  Company Number: None

PATIENT
  Age: 54 Year
  Sex: Female
  Weight: 56.246 kg

DRUGS (1)
  1. ZICAM COLD REMEDY 0.50 FL OZ. ZICAM LLC-MATRIXX INTIATIVE , INC [Suspect]
     Dosage: 1 SQUIRT NASAL
     Route: 045

REACTIONS (2)
  - AGEUSIA [None]
  - ANOSMIA [None]
